FAERS Safety Report 12810401 (Version 1)
Quarter: 2016Q4

REPORT INFORMATION
  Report Type: Spontaneous
  Country: DE (occurrence: DE)
  Receive Date: 20161005
  Receipt Date: 20161005
  Transmission Date: 20170207
  Serious: Yes (Other)
  Sender: FDA-Public Use
  Company Number: DE-DEPOMED, INC.-DE-2016DEP012314

PATIENT
  Age: 90 Year
  Sex: Male

DRUGS (3)
  1. TAPENTADOL HYDROCHLORIDE [Suspect]
     Active Substance: TAPENTADOL HYDROCHLORIDE
     Indication: BACK PAIN
     Dosage: 150 MG, QD
     Route: 048
     Dates: end: 20160922
  2. TAPENTADOL HYDROCHLORIDE [Suspect]
     Active Substance: TAPENTADOL HYDROCHLORIDE
     Dosage: 100 MG, QD
     Route: 048
     Dates: start: 20160925, end: 20160925
  3. NORSPAN [Suspect]
     Active Substance: BUPRENORPHINE
     Indication: BACK PAIN
     Dosage: 20 ?G, 1/HR
     Route: 062
     Dates: start: 20160924, end: 20160926

REACTIONS (3)
  - Drug dispensing error [Recovered/Resolved]
  - Respiratory arrest [Unknown]
  - Confusional state [Unknown]

NARRATIVE: CASE EVENT DATE: 20160926
